FAERS Safety Report 17959836 (Version 1)
Quarter: 2020Q2

REPORT INFORMATION
  Report Type: Spontaneous
  Country: US (occurrence: US)
  Receive Date: 20200630
  Receipt Date: 20200630
  Transmission Date: 20200714
  Serious: No
  Sender: FDA-Public Use
  Company Number: US-009507513-2006USA005147

PATIENT
  Age: 39 Year
  Sex: Female

DRUGS (1)
  1. GANIRELIX ACETATE INJECTION [Suspect]
     Active Substance: GANIRELIX ACETATE
     Dosage: 1 INJECTION DAILY
     Route: 058
     Dates: start: 20200605, end: 20200608

REACTIONS (5)
  - Injection site reaction [Recovered/Resolved]
  - Product use issue [Unknown]
  - Poor quality device used [Unknown]
  - Injection site bruising [Recovered/Resolved]
  - Needle issue [Unknown]

NARRATIVE: CASE EVENT DATE: 20200605
